FAERS Safety Report 8756658 (Version 1)
Quarter: 2012Q4

REPORT INFORMATION
  Report Type: 
  Country: US (occurrence: US)
  Receive Date: 20120828
  Receipt Date: 20120828
  Transmission Date: 20130627
  Serious: Yes (Other)
  Sender: FDA-Public Use
  Company Number: US-BAYER-2012-088396

PATIENT

DRUGS (1)
  1. AVELOX [Suspect]

REACTIONS (6)
  - Hypersensitivity [None]
  - Pharyngeal oedema [None]
  - Swollen tongue [None]
  - Cough [None]
  - Feeling hot [None]
  - Rash generalised [None]
